FAERS Safety Report 9029268 (Version 1)
Quarter: 2013Q1

REPORT INFORMATION
  Report Type: Spontaneous
  Country: US (occurrence: US)
  Receive Date: 20130125
  Receipt Date: 20130125
  Transmission Date: 20140127
  Serious: Yes (Other)
  Sender: FDA-Public Use
  Company Number: US-ELI_LILLY_AND_COMPANY-US201301004347

PATIENT
  Age: 41 Year
  Sex: Male

DRUGS (4)
  1. CIALIS [Suspect]
     Indication: ERECTILE DYSFUNCTION
     Dosage: 5 MG, QD
     Dates: start: 201212, end: 201301
  2. THIAZIDE [Concomitant]
  3. CRESTOR [Concomitant]
  4. ATACAND [Concomitant]

REACTIONS (2)
  - Meniere^s disease [Recovering/Resolving]
  - Vision blurred [Unknown]
